FAERS Safety Report 5202962-1 (Version None)
Quarter: 2006Q4

REPORT INFORMATION
  Report Type: 
  Country: None (occurrence: None)
  Receive Date: 20061018
  Receipt Date: 20060126
  Transmission Date: 20070319
  Serious: Yes (Other)
  Sender: FDA-Public Use
  Company Number: PHEH2006US01096

PATIENT
  Age: 67 Year
  Sex: Female

DRUGS (17)
  1. ZOMETA [Suspect]
     Indication: MULTIPLE MYELOMA
     Dosage: 4MG Q4WK, UNK
     Dates: start: 20051102
  2. ZOLOFT [Concomitant]
  3. OXYCODONE HCL [Concomitant]
  4. LORAZEPAM [Concomitant]
  5. DIOVAN [Concomitant]
  6. HYDROCODONE BITARTRATE + ACETAMINOPHEN [Concomitant]
  7. VERAPAMIL [Concomitant]
  8. OMEPRAZOLE [Concomitant]
  9. PREMPRO [Concomitant]
  10. LEVOTHYROXINE SODIUM [Concomitant]
  11. AMIODARONE HCL [Concomitant]
  12. POTASSIUM (POTASSIUM) [Concomitant]
  13. LASIX [Concomitant]
  14. THALOMID [Concomitant]
  15. FLUTICASONE PROPIONATE [Concomitant]
  16. ROLAIDS [Concomitant]
  17. SENNA (SENNA, SENNA ALEXANDRINA) [Concomitant]

REACTIONS (7)
  - BLOOD ALBUMIN DECREASED [None]
  - BLOOD GLUCOSE INCREASED [None]
  - BLOOD LACTATE DEHYDROGENASE INCREASED [None]
  - HAEMATOCRIT DECREASED [None]
  - HAEMOGLOBIN DECREASED [None]
  - HYPOCALCAEMIA [None]
  - RED BLOOD CELL COUNT DECREASED [None]
